FAERS Safety Report 6862158-4 (Version None)
Quarter: 2010Q3

REPORT INFORMATION
  Report Type: 
  Country: None (occurrence: None)
  Receive Date: 20100719
  Receipt Date: 20100706
  Transmission Date: 20110219
  Serious: Yes (Hospitalization)
  Sender: FDA-Public Use
  Company Number: 7009069

PATIENT
  Age: 47 Year
  Sex: Female

DRUGS (1)
  1. REBIF [Suspect]
     Indication: MULTIPLE SCLEROSIS
     Dosage: 44 MCG, 3 IN 1 WK, SUBCUTANEOUS
     Route: 058
     Dates: start: 20100316

REACTIONS (5)
  - INFLUENZA LIKE ILLNESS [None]
  - PNEUMONIA [None]
  - RASH PRURITIC [None]
  - SENSORY DISTURBANCE [None]
  - URINARY TRACT INFECTION [None]
